FAERS Safety Report 8077451-X (Version None)
Quarter: 2012Q1

REPORT INFORMATION
  Report Type: 
  Country: None (occurrence: None)
  Receive Date: 20120127
  Receipt Date: 20120125
  Transmission Date: 20120608
  Serious: No
  Sender: FDA-Public Use
  Company Number: US-TEVA-319427USA

PATIENT
  Sex: Female
  Weight: 74.91 kg

DRUGS (1)
  1. PROAIR HFA [Suspect]
     Indication: DYSPNOEA
     Dates: start: 20120120, end: 20120122

REACTIONS (1)
  - DYSPHONIA [None]
